FAERS Safety Report 18648797 (Version 1)
Quarter: 2020Q4

REPORT INFORMATION
  Report Type: Spontaneous
  Country: HU (occurrence: HU)
  Receive Date: 20201222
  Receipt Date: 20201222
  Transmission Date: 20210114
  Serious: Yes (Hospitalization, Other)
  Sender: FDA-Public Use
  Company Number: HU-PFIZER INC-2020495701

PATIENT
  Age: 70 Year
  Sex: Female

DRUGS (9)
  1. DILATREND [Suspect]
     Active Substance: CARVEDILOL
     Dosage: 12.5 MG, 2X/DAY
  2. CLOPIDOGREL [Suspect]
     Active Substance: CLOPIDOGREL BISULFATE
     Dosage: UNK
     Dates: start: 2019
  3. NITROGLYCERIN. [Concomitant]
     Active Substance: NITROGLYCERIN
     Dosage: UNK
  4. EPLERENONE. [Suspect]
     Active Substance: EPLERENONE
     Dosage: UNK
     Dates: start: 2019
  5. ENTRESTO [Suspect]
     Active Substance: SACUBITRIL\VALSARTAN
     Dosage: UNK, 2X/DAY (24/26 MG, 2X/DAY)
     Dates: start: 202006, end: 2020
  6. VALSARTAN. [Suspect]
     Active Substance: VALSARTAN
     Dosage: 80 MG, DAILY
  7. TRIMETAZIDINE [Suspect]
     Active Substance: TRIMETAZIDINE
     Dosage: 80 MG, DAILY
  8. ALLOPURINOL. [Suspect]
     Active Substance: ALLOPURINOL
     Dosage: UNK
  9. ACETYLSALICYLIC ACID [Suspect]
     Active Substance: ASPIRIN
     Dosage: UNK

REACTIONS (21)
  - Subdural haemorrhage [Unknown]
  - Hydrothorax [Unknown]
  - Stenosis [Unknown]
  - Coronary artery occlusion [Unknown]
  - Loss of consciousness [Recovered/Resolved]
  - Subarachnoid haemorrhage [Unknown]
  - Arthritis [Unknown]
  - Hypertension [Unknown]
  - Cardiac failure [Unknown]
  - Pre-eclampsia [Unknown]
  - Oedema peripheral [Recovered/Resolved]
  - Drug hypersensitivity [Unknown]
  - Gastrointestinal haemorrhage [Unknown]
  - Myocardial infarction [Unknown]
  - Dyspnoea [Unknown]
  - Hyperkalaemia [Unknown]
  - Atrial fibrillation [Recovered/Resolved]
  - Chest pain [Recovered/Resolved]
  - Left ventricular dysfunction [Unknown]
  - Cardiomegaly [Unknown]
  - Tachypnoea [Unknown]

NARRATIVE: CASE EVENT DATE: 2019
